FAERS Safety Report 24928093 (Version 1)
Quarter: 2025Q1

REPORT INFORMATION
  Report Type: Spontaneous
  Country: US (occurrence: US)
  Receive Date: 20250205
  Receipt Date: 20250205
  Transmission Date: 20250408
  Serious: No
  Sender: MYLAN
  Company Number: US-MYLANLABS-2025M1007641

PATIENT
  Sex: Female

DRUGS (1)
  1. EMSAM [Suspect]
     Active Substance: SELEGILINE
     Indication: Depression
     Dosage: 6 MILLIGRAM, QD
     Route: 062

REACTIONS (3)
  - Application site pain [Unknown]
  - Application site irritation [Unknown]
  - Application site pruritus [Unknown]
